FAERS Safety Report 7743257-1 (Version None)
Quarter: 2011Q3

REPORT INFORMATION
  Report Type: 
  Country: None (occurrence: None)
  Receive Date: 20110912
  Receipt Date: 20110906
  Transmission Date: 20111222
  Serious: Yes (Other)
  Sender: FDA-Public Use
  Company Number: US-ALLERGAN-0711503US

PATIENT
  Age: 6 Year
  Sex: Male

DRUGS (2)
  1. BOTULINUM TOXIN TYPE A [Suspect]
     Indication: MUSCLE SPASTICITY
     Route: 030
  2. BOTULINUM TOXIN TYPE A [Suspect]
     Indication: CEREBRAL PALSY

REACTIONS (1)
  - BOTULISM [None]
